FAERS Safety Report 9834318 (Version 2)
Quarter: 2014Q1

REPORT INFORMATION
  Report Type: Report from Study
  Country: BE (occurrence: BE)
  Receive Date: 20140122
  Receipt Date: 20140122
  Transmission Date: 20141002
  Serious: Yes (Other)
  Sender: FDA-Public Use
  Company Number: BE-BAYER-2014-005788

PATIENT
  Age: 26 Year
  Sex: Male

DRUGS (2)
  1. NEXAVAR [Suspect]
     Indication: HEPATOCELLULAR CARCINOMA
     Dosage: 800 MG, QD
     Route: 048
     Dates: start: 20121128, end: 2013
  2. NEXAVAR [Suspect]
     Indication: HEPATOCELLULAR CARCINOMA
     Dosage: 200 MG, QD
     Route: 048
     Dates: start: 2013

REACTIONS (6)
  - Cerebrovascular accident [None]
  - Cerebrovascular accident [None]
  - Cerebrovascular accident [None]
  - Cerebellar infarction [Not Recovered/Not Resolved]
  - Palmar-plantar erythrodysaesthesia syndrome [None]
  - Diarrhoea [None]
